FAERS Safety Report 20932787 (Version 1)
Quarter: 2022Q2

REPORT INFORMATION
  Report Type: Spontaneous
  Country: US (occurrence: None)
  Receive Date: 20220607
  Receipt Date: 20220607
  Transmission Date: 20220721
  Serious: No
  Sender: FDA-Public Use
  Company Number: None

PATIENT
  Age: 65 Year
  Sex: Male

DRUGS (1)
  1. GLATIRAMER ACETATE [Suspect]
     Active Substance: GLATIRAMER ACETATE
     Indication: Multiple sclerosis
     Dosage: 40MG THREE WEEK SUB Q
     Route: 058
     Dates: start: 202004

REACTIONS (3)
  - Seizure [None]
  - Tremor [None]
  - Grip strength decreased [None]

NARRATIVE: CASE EVENT DATE: 20220502
